FAERS Safety Report 18794920 (Version 10)
Quarter: 2025Q1

REPORT INFORMATION
  Report Type: Report from Study
  Country: CA (occurrence: CA)
  Receive Date: 20210127
  Receipt Date: 20250304
  Transmission Date: 20250408
  Serious: Yes (Other)
  Sender: PFIZER
  Company Number: CA-PFIZER INC-2021050342

PATIENT
  Age: 37 Year
  Sex: Female
  Weight: 54 kg

DRUGS (84)
  1. HEPARIN SODIUM [Suspect]
     Active Substance: HEPARIN SODIUM
     Indication: Flushing
     Route: 065
  2. HEPARIN SODIUM [Suspect]
     Active Substance: HEPARIN SODIUM
     Route: 042
  3. TRASTUZUMAB [Suspect]
     Active Substance: TRASTUZUMAB
     Indication: Breast cancer metastatic
     Route: 065
  4. TRASTUZUMAB [Suspect]
     Active Substance: TRASTUZUMAB
     Indication: HER2 positive breast cancer
     Route: 065
  5. TRASTUZUMAB [Suspect]
     Active Substance: TRASTUZUMAB
     Route: 042
  6. TRASTUZUMAB [Suspect]
     Active Substance: TRASTUZUMAB
     Route: 042
  7. TRASTUZUMAB [Suspect]
     Active Substance: TRASTUZUMAB
     Route: 042
  8. TRASTUZUMAB [Suspect]
     Active Substance: TRASTUZUMAB
     Route: 042
  9. TRASTUZUMAB [Suspect]
     Active Substance: TRASTUZUMAB
     Route: 042
  10. TRASTUZUMAB [Suspect]
     Active Substance: TRASTUZUMAB
     Route: 042
  11. TRASTUZUMAB [Suspect]
     Active Substance: TRASTUZUMAB
     Route: 042
  12. TRASTUZUMAB [Suspect]
     Active Substance: TRASTUZUMAB
     Route: 042
  13. TRASTUZUMAB [Suspect]
     Active Substance: TRASTUZUMAB
     Route: 042
  14. TRASTUZUMAB [Suspect]
     Active Substance: TRASTUZUMAB
     Route: 042
  15. TRASTUZUMAB [Suspect]
     Active Substance: TRASTUZUMAB
     Route: 042
  16. TRASTUZUMAB [Suspect]
     Active Substance: TRASTUZUMAB
     Route: 042
  17. TRASTUZUMAB [Suspect]
     Active Substance: TRASTUZUMAB
     Route: 042
  18. TRASTUZUMAB [Suspect]
     Active Substance: TRASTUZUMAB
     Indication: Breast cancer metastatic
     Dosage: 328 MG, EVERY 3 WEEKS
     Route: 042
  19. TRASTUZUMAB [Suspect]
     Active Substance: TRASTUZUMAB
     Indication: HER2 positive breast cancer
     Dosage: 328 MG, EVERY 3 WEEKS
     Route: 042
  20. TRASTUZUMAB [Suspect]
     Active Substance: TRASTUZUMAB
     Route: 042
  21. TRASTUZUMAB [Suspect]
     Active Substance: TRASTUZUMAB
     Dosage: 194 MG, EVERY 3 WEEKS
     Route: 042
  22. TRASTUZUMAB [Suspect]
     Active Substance: TRASTUZUMAB
     Dosage: 328 MG, EVERY 3 WEEKS
     Route: 042
  23. TRASTUZUMAB [Suspect]
     Active Substance: TRASTUZUMAB
     Dosage: 295 MG, EVERY 3 WEEKS
     Route: 042
  24. TRASTUZUMAB [Suspect]
     Active Substance: TRASTUZUMAB
     Route: 042
  25. TRASTUZUMAB [Suspect]
     Active Substance: TRASTUZUMAB
     Route: 042
  26. HUMAN IMMUNOGLOBULIN G [Suspect]
     Active Substance: HUMAN IMMUNOGLOBULIN G
     Route: 042
  27. KADCYLA [Suspect]
     Active Substance: ADO-TRASTUZUMAB EMTANSINE
     Indication: Breast cancer metastatic
     Route: 042
  28. KADCYLA [Suspect]
     Active Substance: ADO-TRASTUZUMAB EMTANSINE
     Route: 042
  29. KADCYLA [Suspect]
     Active Substance: ADO-TRASTUZUMAB EMTANSINE
     Indication: Breast cancer metastatic
     Route: 042
  30. KADCYLA [Suspect]
     Active Substance: ADO-TRASTUZUMAB EMTANSINE
     Route: 042
  31. KADCYLA [Suspect]
     Active Substance: ADO-TRASTUZUMAB EMTANSINE
     Route: 042
  32. PERJETA [Suspect]
     Active Substance: PERTUZUMAB
     Indication: Breast cancer metastatic
     Route: 042
  33. PERJETA [Suspect]
     Active Substance: PERTUZUMAB
     Dosage: 420 MG, EVERY 3 WEEKS
     Route: 042
  34. PERJETA [Suspect]
     Active Substance: PERTUZUMAB
     Dosage: 420 MG, EVERY 3 WEEKS
     Route: 042
  35. PERJETA [Suspect]
     Active Substance: PERTUZUMAB
     Route: 042
  36. PERJETA [Suspect]
     Active Substance: PERTUZUMAB
     Dosage: 420 MG, EVERY 3 WEEKS
     Route: 042
  37. PERJETA [Suspect]
     Active Substance: PERTUZUMAB
     Indication: Breast cancer metastatic
     Route: 042
  38. PERJETA [Suspect]
     Active Substance: PERTUZUMAB
     Route: 042
  39. PERJETA [Suspect]
     Active Substance: PERTUZUMAB
     Route: 042
  40. PERJETA [Suspect]
     Active Substance: PERTUZUMAB
     Route: 042
  41. PERJETA [Suspect]
     Active Substance: PERTUZUMAB
     Route: 042
  42. PERJETA [Suspect]
     Active Substance: PERTUZUMAB
     Route: 042
  43. PERJETA [Suspect]
     Active Substance: PERTUZUMAB
     Route: 042
  44. PERJETA [Suspect]
     Active Substance: PERTUZUMAB
     Route: 042
  45. PERJETA [Suspect]
     Active Substance: PERTUZUMAB
     Route: 042
  46. PERJETA [Suspect]
     Active Substance: PERTUZUMAB
     Route: 042
  47. PERJETA [Suspect]
     Active Substance: PERTUZUMAB
     Route: 042
  48. PERJETA [Suspect]
     Active Substance: PERTUZUMAB
     Route: 042
  49. PERJETA [Suspect]
     Active Substance: PERTUZUMAB
     Route: 042
  50. PERJETA [Suspect]
     Active Substance: PERTUZUMAB
     Route: 042
  51. PERJETA [Suspect]
     Active Substance: PERTUZUMAB
     Route: 042
  52. PERJETA [Suspect]
     Active Substance: PERTUZUMAB
     Route: 042
  53. PERJETA [Suspect]
     Active Substance: PERTUZUMAB
     Route: 042
  54. PERJETA [Suspect]
     Active Substance: PERTUZUMAB
     Route: 042
  55. PERJETA [Suspect]
     Active Substance: PERTUZUMAB
     Route: 042
  56. PERJETA [Suspect]
     Active Substance: PERTUZUMAB
     Route: 042
  57. PERJETA [Suspect]
     Active Substance: PERTUZUMAB
     Route: 042
  58. PERJETA [Suspect]
     Active Substance: PERTUZUMAB
     Route: 042
  59. PERJETA [Suspect]
     Active Substance: PERTUZUMAB
     Route: 042
  60. PERJETA [Suspect]
     Active Substance: PERTUZUMAB
     Route: 042
  61. PERJETA [Suspect]
     Active Substance: PERTUZUMAB
     Route: 042
  62. PERJETA [Suspect]
     Active Substance: PERTUZUMAB
     Route: 042
  63. PERJETA [Suspect]
     Active Substance: PERTUZUMAB
     Route: 042
  64. PERJETA [Suspect]
     Active Substance: PERTUZUMAB
     Route: 042
  65. PERJETA [Suspect]
     Active Substance: PERTUZUMAB
     Route: 042
  66. PERJETA [Suspect]
     Active Substance: PERTUZUMAB
     Route: 042
  67. XELODA [Suspect]
     Active Substance: CAPECITABINE
     Route: 065
  68. XELODA [Suspect]
     Active Substance: CAPECITABINE
     Route: 048
  69. BENADRYL [Concomitant]
     Active Substance: DIPHENHYDRAMINE HYDROCHLORIDE
     Route: 042
  70. MAGNESIUM [Concomitant]
     Active Substance: MAGNESIUM
     Indication: Premedication
     Route: 042
  71. PACLITAXEL [Concomitant]
     Active Substance: PACLITAXEL
     Indication: Breast cancer
     Route: 065
  72. PACLITAXEL [Concomitant]
     Active Substance: PACLITAXEL
     Route: 065
  73. PACLITAXEL [Concomitant]
     Active Substance: PACLITAXEL
  74. PACLITAXEL [Concomitant]
     Active Substance: PACLITAXEL
     Indication: Breast cancer
     Route: 042
  75. SOLU-MEDROL [Concomitant]
     Active Substance: METHYLPREDNISOLONE SODIUM SUCCINATE
     Route: 042
  76. SOLU-MEDROL [Concomitant]
     Active Substance: METHYLPREDNISOLONE SODIUM SUCCINATE
     Route: 042
  77. TAXOL [Concomitant]
     Active Substance: PACLITAXEL
     Route: 065
  78. TAXOL [Concomitant]
     Active Substance: PACLITAXEL
  79. TRAMADOL HYDROCHLORIDE [Concomitant]
     Active Substance: TRAMADOL HYDROCHLORIDE
     Route: 065
  80. TRAMADOL HYDROCHLORIDE [Concomitant]
     Active Substance: TRAMADOL HYDROCHLORIDE
     Indication: Pain
     Route: 065
  81. TRAMADOL HYDROCHLORIDE [Concomitant]
     Active Substance: TRAMADOL HYDROCHLORIDE
     Indication: Pain
     Route: 065
  82. HEPARIN [Concomitant]
     Active Substance: HEPARIN SODIUM
     Indication: Flushing
     Route: 042
  83. HEPARIN [Concomitant]
     Active Substance: HEPARIN SODIUM
  84. TRAZIMERA [Concomitant]
     Active Substance: TRASTUZUMAB-QYYP

REACTIONS (51)
  - Injection site haemorrhage [Not Recovered/Not Resolved]
  - Vascular access site haemorrhage [Not Recovered/Not Resolved]
  - Epistaxis [Not Recovered/Not Resolved]
  - Abdominal pain [Not Recovered/Not Resolved]
  - Asthenia [Not Recovered/Not Resolved]
  - Blood creatine phosphokinase increased [Not Recovered/Not Resolved]
  - Blood pressure systolic decreased [Not Recovered/Not Resolved]
  - Constipation [Not Recovered/Not Resolved]
  - Dry mouth [Not Recovered/Not Resolved]
  - Dry skin [Not Recovered/Not Resolved]
  - Dry throat [Not Recovered/Not Resolved]
  - Fatigue [Not Recovered/Not Resolved]
  - Headache [Not Recovered/Not Resolved]
  - Hepatitis [Not Recovered/Not Resolved]
  - Hyperaesthesia [Not Recovered/Not Resolved]
  - Hypotension [Not Recovered/Not Resolved]
  - Malaise [Not Recovered/Not Resolved]
  - Muscular weakness [Not Recovered/Not Resolved]
  - Myalgia [Not Recovered/Not Resolved]
  - Nasopharyngitis [Not Recovered/Not Resolved]
  - Nausea [Not Recovered/Not Resolved]
  - Pain [Not Recovered/Not Resolved]
  - Palpitations [Not Recovered/Not Resolved]
  - Paraesthesia [Not Recovered/Not Resolved]
  - Pruritus [Not Recovered/Not Resolved]
  - Urinary tract infection [Not Recovered/Not Resolved]
  - Weight decreased [Not Recovered/Not Resolved]
  - Hand dermatitis [Not Recovered/Not Resolved]
  - Blood pressure decreased [Not Recovered/Not Resolved]
  - Blood pressure diastolic decreased [Not Recovered/Not Resolved]
  - Blister [Not Recovered/Not Resolved]
  - Blood magnesium decreased [Not Recovered/Not Resolved]
  - Blood test abnormal [Not Recovered/Not Resolved]
  - Breast disorder [Not Recovered/Not Resolved]
  - Dysmenorrhoea [Not Recovered/Not Resolved]
  - Eczema [Not Recovered/Not Resolved]
  - Faeces soft [Not Recovered/Not Resolved]
  - Gingival pain [Not Recovered/Not Resolved]
  - Neoplasm progression [Not Recovered/Not Resolved]
  - Recurrent cancer [Not Recovered/Not Resolved]
  - Seasonal allergy [Not Recovered/Not Resolved]
  - Skin fissures [Not Recovered/Not Resolved]
  - Sneezing [Not Recovered/Not Resolved]
  - Stress [Not Recovered/Not Resolved]
  - Tumour marker increased [Not Recovered/Not Resolved]
  - Vulvovaginal pain [Not Recovered/Not Resolved]
  - Weight increased [Not Recovered/Not Resolved]
  - Blood iron decreased [Not Recovered/Not Resolved]
  - Electric shock sensation [Not Recovered/Not Resolved]
  - Heart rate decreased [Not Recovered/Not Resolved]
  - Sensitive skin [Not Recovered/Not Resolved]
